FAERS Safety Report 14236004 (Version 2)
Quarter: 2017Q4

REPORT INFORMATION
  Report Type: Spontaneous
  Country: US (occurrence: US)
  Receive Date: 20171129
  Receipt Date: 20171208
  Transmission Date: 20180321
  Serious: Yes (Death, Hospitalization, Other)
  Sender: FDA-Public Use
  Company Number: US-ENDO PHARMACEUTICALS INC-2017-007179

PATIENT
  Age: 15 Year
  Sex: Female

DRUGS (2)
  1. SUPPRELIN LA [Suspect]
     Active Substance: HISTRELIN ACETATE
     Indication: PRECOCIOUS PUBERTY
     Dosage: UNK UNK, UNKNOWN
     Route: 065
     Dates: start: 2016
  2. SUPPRELIN LA [Suspect]
     Active Substance: HISTRELIN ACETATE
     Dosage: UNK UNK, UNKNOWN
     Route: 065
     Dates: end: 2013

REACTIONS (3)
  - Death [Fatal]
  - Brain death [Not Recovered/Not Resolved]
  - Bronchial secretion retention [Unknown]

NARRATIVE: CASE EVENT DATE: 2016
